FAERS Safety Report 6636153-4 (Version None)
Quarter: 2010Q1

REPORT INFORMATION
  Report Type: 
  Country: None (occurrence: None)
  Receive Date: 20100316
  Receipt Date: 20100227
  Transmission Date: 20100710
  Serious: No
  Sender: FDA-Public Use
  Company Number: US-B.I. PHARMACEUTICALS,INC./RIDGEFIELD-2010-BP-02419BP

PATIENT
  Sex: Female

DRUGS (9)
  1. SPIRIVA [Suspect]
     Indication: CHRONIC OBSTRUCTIVE PULMONARY DISEASE
     Dosage: 18 MCG
     Route: 055
     Dates: start: 20100129, end: 20100224
  2. PULMICORT [Suspect]
     Indication: CHRONIC OBSTRUCTIVE PULMONARY DISEASE
     Dates: start: 20100129, end: 20100201
  3. FLONASE [Suspect]
     Dates: start: 20100129, end: 20100201
  4. SOTALOL [Concomitant]
     Indication: ATRIAL FIBRILLATION
  5. DILTIAZEM HCL [Concomitant]
     Indication: ATRIAL FIBRILLATION
  6. PAXIL [Concomitant]
     Indication: DEPRESSION
  7. RANITIDINE [Concomitant]
     Indication: ULCER
  8. ASPIRIN [Concomitant]
     Indication: PROPHYLAXIS
  9. LORAZEPAM [Concomitant]
     Indication: RELAXATION THERAPY

REACTIONS (5)
  - COUGH [None]
  - DYSPNOEA [None]
  - FEELING ABNORMAL [None]
  - HEADACHE [None]
  - INCREASED UPPER AIRWAY SECRETION [None]
